FAERS Safety Report 7204953-8 (Version None)
Quarter: 2010Q4

REPORT INFORMATION
  Report Type: 
  Country: None (occurrence: None)
  Receive Date: 20101230
  Receipt Date: 20101223
  Transmission Date: 20110411
  Serious: Yes (Other)
  Sender: FDA-Public Use
  Company Number: US-PFIZER INC-2010178855

PATIENT
  Sex: Female
  Weight: 90.7 kg

DRUGS (2)
  1. METFORMIN HCL [Suspect]
     Indication: DIABETES MELLITUS
     Dosage: UNK
     Dates: end: 20091201
  2. VFEND [Suspect]
     Dosage: UNK, 2X/DAY
     Dates: start: 20091201

REACTIONS (4)
  - ALOPECIA [None]
  - ASPERGILLOSIS [None]
  - DRUG INEFFECTIVE [None]
  - VISUAL IMPAIRMENT [None]
